FAERS Safety Report 6032120-2 (Version None)
Quarter: 2009Q1

REPORT INFORMATION
  Report Type: 
  Country: None (occurrence: None)
  Receive Date: 20090107
  Receipt Date: 20081224
  Transmission Date: 20090719
  Serious: No
  Sender: FDA-Public Use
  Company Number: 004715

PATIENT
  Sex: Female

DRUGS (2)
  1. PLETAL [Suspect]
     Dosage: 100 MG, BID ORAL
     Route: 048
  2. EPADEL (ETHYL ICOSAPENTATE) CAPSULE [Suspect]
     Dosage: ORAL
     Route: 048

REACTIONS (3)
  - ALANINE AMINOTRANSFERASE INCREASED [None]
  - ASPARTATE AMINOTRANSFERASE INCREASED [None]
  - LIVER FUNCTION TEST ABNORMAL [None]
